FAERS Safety Report 16990452 (Version 1)
Quarter: 2019Q4

REPORT INFORMATION
  Report Type: Spontaneous
  Country: US (occurrence: US)
  Receive Date: 20191101
  Receipt Date: 20191101
  Transmission Date: 20200122
  Serious: No
  Sender: FDA-Public Use
  Company Number: None

PATIENT
  Age: 62 Year
  Sex: Female
  Weight: 137 kg

DRUGS (1)
  1. HUMULIN R U-500 KWIKPEN [Suspect]
     Active Substance: INSULIN HUMAN

REACTIONS (4)
  - Incorrect dose administered by device [None]
  - Device malfunction [None]
  - Device defective [None]
  - Device difficult to use [None]

NARRATIVE: CASE EVENT DATE: 20191028
